FAERS Safety Report 5101255-0 (Version None)
Quarter: 2006Q3

REPORT INFORMATION
  Report Type: 
  Country: None (occurrence: None)
  Receive Date: 20060911
  Receipt Date: 20060828
  Transmission Date: 20061208
  Serious: Yes (Other)
  Sender: FDA-Public Use
  Company Number: GB-ROCHE-462307

PATIENT
  Age: 66 Year
  Sex: Male
  Weight: 112 kg

DRUGS (9)
  1. XENICAL [Suspect]
     Route: 048
     Dates: start: 20051001, end: 20060116
  2. ALLOPURINOL [Concomitant]
     Route: 048
     Dates: start: 20040801
  3. AMLODIPINE [Concomitant]
     Route: 048
     Dates: start: 20040801
  4. ASPIRIN [Concomitant]
     Route: 048
     Dates: start: 20040801
  5. ATENOLOL [Concomitant]
     Route: 048
     Dates: start: 20040801
  6. CAPTOPRIL [Concomitant]
     Route: 048
     Dates: start: 19930101
  7. ACETAMINOPHEN W/ CODEINE [Concomitant]
     Route: 048
     Dates: start: 20040801
  8. EZETIMIBE [Concomitant]
     Indication: BLOOD CHOLESTEROL INCREASED
     Route: 048
     Dates: start: 20050401
  9. FUROSEMIDE [Concomitant]
     Route: 048
     Dates: start: 20050101

REACTIONS (2)
  - BLOOD CREATININE INCREASED [None]
  - RENAL IMPAIRMENT [None]
